FAERS Safety Report 19372358 (Version 3)
Quarter: 2021Q3

REPORT INFORMATION
  Report Type: Spontaneous
  Country: AU (occurrence: AU)
  Receive Date: 20210604
  Receipt Date: 20210707
  Transmission Date: 20211014
  Serious: Yes (Death, Other)
  Sender: FDA-Public Use
  Company Number: AU-PFIZER INC-2021630092

PATIENT
  Age: 55 Year
  Sex: Female

DRUGS (7)
  1. CYCLOPHOSPHAMIDE. [Concomitant]
     Active Substance: CYCLOPHOSPHAMIDE
     Indication: VASCULITIS
     Dosage: 1 G
  2. METHYLPREDNISOLONE SULEPTANATE [Concomitant]
     Active Substance: METHYLPREDNISOLONE SULEPTANATE
     Dosage: 1 G
  3. SERTRALINE HCL [Suspect]
     Active Substance: SERTRALINE HYDROCHLORIDE
     Indication: DEPRESSION
     Dosage: UNK
  4. FLUDROCORTISON [Concomitant]
     Active Substance: FLUDROCORTISONE
     Dosage: UNK
  5. RITUXIMAB. [Concomitant]
     Active Substance: RITUXIMAB
     Dosage: 1 G
  6. METHYLPREDNISOLONE SULEPTANATE [Concomitant]
     Active Substance: METHYLPREDNISOLONE SULEPTANATE
     Dosage: BY TAPER
     Route: 048
  7. METHYLPREDNISOLONE SULEPTANATE [Concomitant]
     Active Substance: METHYLPREDNISOLONE SULEPTANATE
     Indication: VASCULITIS
     Dosage: 1 G

REACTIONS (1)
  - Reversible cerebral vasoconstriction syndrome [Fatal]
